FAERS Safety Report 6411209-X (Version None)
Quarter: 2009Q4

REPORT INFORMATION
  Report Type: 
  Country: None (occurrence: None)
  Receive Date: 20091019
  Receipt Date: 20091001
  Transmission Date: 20100525
  Serious: Yes (Hospitalization)
  Sender: FDA-Public Use
  Company Number: BVT-000339

PATIENT
  Sex: Female
  Weight: 46 kg

DRUGS (3)
  1. KINERET [Suspect]
     Dates: start: 20020915, end: 20051015
  2. AZATHIOPRINE [Concomitant]
  3. RITUXIMAB [Concomitant]

REACTIONS (5)
  - ABDOMINAL DISTENSION [None]
  - ABDOMINAL PAIN LOWER [None]
  - COLON CANCER [None]
  - FREQUENT BOWEL MOVEMENTS [None]
  - LYMPHADENOPATHY [None]
